FAERS Safety Report 7226316-1 (Version None)
Quarter: 2011Q1

REPORT INFORMATION
  Report Type: 
  Country: None (occurrence: None)
  Receive Date: 20110114
  Receipt Date: 20110107
  Transmission Date: 20110831
  Serious: Yes (Other)
  Sender: FDA-Public Use
  Company Number: PHHY2011US01689

PATIENT
  Sex: Female

DRUGS (13)
  1. PAROXETINE HCL [Concomitant]
     Dosage: 0.5 DF, QD
  2. METROMIN [Concomitant]
     Dosage: 0.5 DF, BID
  3. EXTAVIA [Suspect]
     Dosage: UNK
  4. BACLOFEN [Concomitant]
     Dosage: 10 MG, BID
  5. FENOFIBRATE [Concomitant]
     Dosage: 160 MG, QD
  6. IBUPROFEN [Concomitant]
     Dosage: 800 MG, TID
  7. RANITIDINE [Concomitant]
     Dosage: 150 MG, BID
  8. METHYLIN [Concomitant]
     Dosage: 0.5 DF, QD
  9. EXTAVIA [Suspect]
     Indication: MULTIPLE SCLEROSIS
     Dosage: 0.062 MG, QOD
     Route: 058
     Dates: start: 20100929
  10. GABAPENTIN [Concomitant]
     Dosage: 300 MG, BID
  11. NAMENDA [Concomitant]
     Dosage: 10 MG, UNK
  12. SIMVASTATIN [Concomitant]
     Dosage: 10 MG, QD
  13. ASPIRIN [Concomitant]
     Dosage: 81 MG, QD

REACTIONS (3)
  - LOWER LIMB FRACTURE [None]
  - MULTIPLE FRACTURES [None]
  - FALL [None]
